FAERS Safety Report 21076806 (Version 3)
Quarter: 2022Q3

REPORT INFORMATION
  Report Type: Report from Study
  Country: KR (occurrence: KR)
  Receive Date: 20220713
  Receipt Date: 20220830
  Transmission Date: 20221026
  Serious: Yes (Hospitalization, Other)
  Sender: FDA-Public Use
  Company Number: KR-TAKEDA-2022TUS046822

PATIENT
  Age: 70 Year
  Sex: Male
  Weight: 72 kg

DRUGS (13)
  1. BRIGATINIB [Suspect]
     Active Substance: BRIGATINIB
     Indication: Non-small cell lung cancer
     Dosage: 90 MILLIGRAM, QD
     Route: 048
     Dates: start: 20220624, end: 20220707
  2. ULTRACET ER SEMI [Concomitant]
     Indication: Headache
     Dosage: UNK, QD
     Route: 048
     Dates: start: 20220524
  3. STILLEN [Concomitant]
     Indication: Gastritis prophylaxis
     Dosage: 120 MILLIGRAM, QD
     Route: 048
     Dates: start: 20220311
  4. GASTIIN CR [Concomitant]
     Indication: Prophylaxis
     Dosage: UNK, QD
     Route: 048
     Dates: start: 20180908
  5. MUCOSOL [Concomitant]
     Active Substance: ACETYLCYSTEINE
     Indication: Prophylaxis
     Dosage: 24 MILLIGRAM, QD
     Route: 048
     Dates: start: 20220524
  6. K CAB [Concomitant]
     Indication: Gastritis prophylaxis
     Dosage: UNK, QD
     Route: 048
     Dates: start: 20210601
  7. SURFOLASE [Concomitant]
     Indication: Chronic obstructive pulmonary disease
     Dosage: UNK, QD
     Route: 048
     Dates: start: 20161101
  8. UMECLIDINIUM BROMIDE\VILANTEROL TRIFENATATE [Concomitant]
     Active Substance: UMECLIDINIUM BROMIDE\VILANTEROL TRIFENATATE
     Indication: Chronic obstructive pulmonary disease
     Dosage: UNK, QD
     Route: 048
     Dates: start: 20210831
  9. CHOLINE ALFOSCERATE [Concomitant]
     Active Substance: CHOLINE ALFOSCERATE
     Indication: Headache
     Dosage: UNK, QD
     Route: 048
     Dates: start: 20220311
  10. Myonal [Concomitant]
     Indication: Asthenia
     Dosage: UNK, QD
     Route: 048
     Dates: start: 20211203
  11. TANAMIN [Concomitant]
     Indication: Headache
     Dosage: 160 MILLIGRAM, QD
     Route: 048
     Dates: start: 20181224
  12. NEURONTIN [Concomitant]
     Active Substance: GABAPENTIN
     Indication: Headache
     Dosage: 60 MILLIGRAM, QD
     Route: 048
     Dates: start: 20210712
  13. TEPRA [Concomitant]
     Indication: Arrhythmia
     Dosage: 40 MILLIGRAM, QD
     Route: 048
     Dates: start: 20220627

REACTIONS (1)
  - Rhabdomyolysis [Recovered/Resolved]

NARRATIVE: CASE EVENT DATE: 20220706
